FAERS Safety Report 8472485 (Version 5)
Quarter: 2014Q1

REPORT INFORMATION
  Report Type: Report from Study
  Country: DE (occurrence: DE)
  Receive Date: 20120322
  Receipt Date: 20140324
  Transmission Date: 20141002
  Serious: Yes (Hospitalization)
  Sender: FDA-Public Use
  Company Number: DE-BAYER-2012-024764

PATIENT
  Age: 80 Year
  Sex: Male
  Weight: 48 kg

DRUGS (9)
  1. NEXAVAR [Suspect]
     Indication: HEPATOCELLULAR CARCINOMA
     Dosage: DAILY DOSE 400 MG
     Dates: start: 20101209, end: 20110815
  2. NEXAVAR [Suspect]
     Indication: HEPATOCELLULAR CARCINOMA
     Dosage: DAILY DOSE 200 MG
     Dates: start: 20110815, end: 20110901
  3. NEXAVAR [Suspect]
     Indication: HEPATOCELLULAR CARCINOMA
     Dosage: UNK
     Dates: start: 20110901
  4. NEXAVAR [Suspect]
     Indication: HEPATOCELLULAR CARCINOMA
     Dosage: DAILY DOSE 800 MG
     Route: 048
     Dates: start: 20091027, end: 20091217
  5. NEXAVAR [Suspect]
     Indication: HEPATOCELLULAR CARCINOMA
     Dosage: DAILY DOSE 400 MG
     Route: 048
     Dates: start: 20091218, end: 20101021
  6. NEXAVAR [Suspect]
     Indication: HEPATOCELLULAR CARCINOMA
     Dosage: DAILY DOSE 400 MG
     Route: 048
     Dates: start: 20101030
  7. ENAHEXAL [ENALAPRIL MALEATE] [Concomitant]
     Indication: HYPERTENSION
     Dosage: 10 MG, 20 MG, 1-0-1,
     Dates: start: 20091217
  8. NORVASC [Concomitant]
     Indication: HYPERTENSION
     Dosage: 5 MG, 5 MG, 1-0-0
     Dates: start: 20091217
  9. ASS [Concomitant]
     Indication: ANTICOAGULANT THERAPY
     Dosage: 100 MG, 100 MG, 1-0-0
     Dates: start: 20091217

REACTIONS (3)
  - Cerebral infarction [Recovered/Resolved]
  - Hemiparesis [Recovered/Resolved]
  - Aphasia [Recovered/Resolved]
